FAERS Safety Report 20377651 (Version 4)
Quarter: 2022Q2

REPORT INFORMATION
  Report Type: Spontaneous
  Country: CA (occurrence: CA)
  Receive Date: 20220126
  Receipt Date: 20220406
  Transmission Date: 20220721
  Serious: Yes (Other)
  Sender: FDA-Public Use
  Company Number: CA-CELLTRION INC.-2021CA018269

PATIENT

DRUGS (1)
  1. INFLECTRA [Suspect]
     Active Substance: INFLIXIMAB-DYYB
     Dosage: UNK

REACTIONS (6)
  - Tooth abscess [Unknown]
  - Abscess oral [Unknown]
  - Pruritus [Unknown]
  - Neck pain [Unknown]
  - Back pain [Unknown]
  - COVID-19 [Unknown]

NARRATIVE: CASE EVENT DATE: 20220317
